FAERS Safety Report 7207421-2 (Version None)
Quarter: 2011Q1

REPORT INFORMATION
  Report Type: 
  Country: None (occurrence: None)
  Receive Date: 20110103
  Receipt Date: 20101217
  Transmission Date: 20110831
  Serious: Yes (Other)
  Sender: FDA-Public Use
  Company Number: PHHY2010FR86022

PATIENT
  Age: 3 Week
  Sex: Male

DRUGS (3)
  1. CEFOTAXIME SODIUM [Suspect]
     Indication: RESPIRATORY DISTRESS
  2. GENTAMICIN [Suspect]
     Indication: RESPIRATORY DISTRESS
  3. AMOXICILLIN [Suspect]
     Indication: RESPIRATORY DISTRESS

REACTIONS (11)
  - URINE SODIUM INCREASED [None]
  - EOSINOPHILIA [None]
  - ALANINE AMINOTRANSFERASE INCREASED [None]
  - PROTEINURIA [None]
  - TUBULOINTERSTITIAL NEPHRITIS [None]
  - GLOMERULAR FILTRATION RATE INCREASED [None]
  - URINARY CASTS PRESENT [None]
  - RENAL FAILURE ACUTE [None]
  - BLOOD CREATININE INCREASED [None]
  - GAMMA-GLUTAMYLTRANSFERASE INCREASED [None]
  - LIVER INJURY [None]
